FAERS Safety Report 16288807 (Version 1)
Quarter: 2019Q2

REPORT INFORMATION
  Report Type: Spontaneous
  Country: JP (occurrence: JP)
  Receive Date: 20190509
  Receipt Date: 20190509
  Transmission Date: 20190711
  Serious: Yes (Other)
  Sender: FDA-Public Use
  Company Number: JP-SAKK-2019SA123170AA

PATIENT
  Age: 52 Year
  Sex: Male

DRUGS (1)
  1. DUPIXENT [Suspect]
     Active Substance: DUPILUMAB
     Indication: DERMATITIS ATOPIC
     Route: 058

REACTIONS (8)
  - Conjunctivitis [Unknown]
  - Staphylococcal skin infection [Unknown]
  - Intraocular pressure increased [Unknown]
  - Lip injury [Unknown]
  - Immunosuppression [Unknown]
  - Pruritus [Unknown]
  - Nasopharyngitis [Unknown]
  - Hypersensitivity [Unknown]
